FAERS Safety Report 9079222 (Version 1)
Quarter: 2013Q1

REPORT INFORMATION
  Report Type: Report from Study
  Country: US (occurrence: US)
  Receive Date: 20130130
  Receipt Date: 20130130
  Transmission Date: 20140127
  Serious: No
  Sender: FDA-Public Use
  Company Number: US-ABBOTT-12P-163-0958411-00

PATIENT
  Age: 48 Year
  Sex: Female

DRUGS (10)
  1. HUMIRA 40 MG/0.8 ML PEN [Suspect]
     Indication: CROHN^S DISEASE
     Dates: start: 20120411
  2. LIALDA [Concomitant]
     Indication: CROHN^S DISEASE
     Route: 048
  3. WELLBUTRIN [Concomitant]
     Indication: DEPRESSION
     Route: 048
  4. WELLBUTRIN [Concomitant]
     Indication: ANXIETY
  5. EFFEXOR [Concomitant]
     Indication: DEPRESSION
     Route: 048
  6. EFFEXOR [Concomitant]
     Indication: ANXIETY
  7. GABAPENTIN [Concomitant]
     Indication: NECK PAIN
     Route: 048
  8. NORCO [Concomitant]
     Indication: NECK PAIN
     Route: 048
  9. TRAZODONE [Concomitant]
     Indication: INSOMNIA
     Route: 048
  10. TRIVORA-28 [Concomitant]
     Indication: CONTRACEPTION
     Route: 048

REACTIONS (1)
  - Rash pustular [Not Recovered/Not Resolved]
